FAERS Safety Report 5354060-4 (Version None)
Quarter: 2007Q2

REPORT INFORMATION
  Report Type: 
  Country: None (occurrence: None)
  Receive Date: 20070612
  Receipt Date: 20070608
  Transmission Date: 20071010
  Serious: Yes (Other)
  Sender: FDA-Public Use
  Company Number: A0654843A

PATIENT
  Sex: Male

DRUGS (6)
  1. AVANDIA [Suspect]
     Dosage: 4MG TWICE PER DAY
     Route: 048
     Dates: end: 20070607
  2. AVODART [Suspect]
     Indication: BENIGN PROSTATIC HYPERPLASIA
     Dosage: .5MG PER DAY
     Route: 048
  3. HYTRIN [Concomitant]
  4. QUINAPRIL [Concomitant]
  5. TOPROL-XL [Concomitant]
  6. DARVOCET [Concomitant]

REACTIONS (2)
  - ANGINA PECTORIS [None]
  - SEMEN VOLUME DECREASED [None]
